FAERS Safety Report 24246669 (Version 1)
Quarter: 2024Q3

REPORT INFORMATION
  Report Type: Report from Study
  Country: US (occurrence: US)
  Receive Date: 20240825
  Receipt Date: 20240825
  Transmission Date: 20241016
  Serious: Yes (Other)
  Sender: JOHNSON AND JOHNSON
  Company Number: US-JNJFOC-20240854950

PATIENT
  Age: 41 Year
  Sex: Male

DRUGS (8)
  1. SPRAVATO [Suspect]
     Active Substance: ESKETAMINE
     Indication: Depression
     Dosage: ^28 MG, 1 TOTAL DOSE^
     Dates: start: 20240502, end: 20240502
  2. SPRAVATO [Suspect]
     Active Substance: ESKETAMINE
     Dosage: ^42 MG, 1 TOTAL DOSE^
     Dates: start: 20240509, end: 20240509
  3. SPRAVATO [Suspect]
     Active Substance: ESKETAMINE
     Dosage: ^56 MG, 2 TOTAL DOSES^
     Dates: start: 20240514, end: 20240516
  4. SPRAVATO [Suspect]
     Active Substance: ESKETAMINE
     Dosage: ^84 MG, 1 TOTAL DOSE^
     Dates: start: 20240521, end: 20240521
  5. SPRAVATO [Suspect]
     Active Substance: ESKETAMINE
     Dosage: ^56 MG, 3 TOTAL DOSES^
     Dates: start: 20240523, end: 20240530
  6. SPRAVATO [Suspect]
     Active Substance: ESKETAMINE
     Dosage: ^70 MG, 2 TOTAL DOSES^
     Dates: start: 20240604, end: 20240606
  7. SPRAVATO [Suspect]
     Active Substance: ESKETAMINE
     Dosage: ^84 MG, 13 TOTAL DOSES^
     Dates: start: 20240613, end: 20240813
  8. SPRAVATO [Suspect]
     Active Substance: ESKETAMINE
     Dosage: ^70 MG, 1 TOTAL DOSE^, RECENT DOSE
     Dates: start: 20240815, end: 20240815

REACTIONS (1)
  - Therapy change [Unknown]

NARRATIVE: CASE EVENT DATE: 20240101
